FAERS Safety Report 6415751-7 (Version None)
Quarter: 2009Q4

REPORT INFORMATION
  Report Type: 
  Country: None (occurrence: None)
  Receive Date: 20091027
  Receipt Date: 20091015
  Transmission Date: 20100525
  Serious: Yes (Life-Threatening, Other)
  Sender: FDA-Public Use
  Company Number: CA-BAYER-200936521NA

PATIENT
  Sex: Female

DRUGS (1)
  1. TRASYLOL [Suspect]
     Indication: VASCULAR GRAFT
     Dates: start: 20041115

REACTIONS (3)
  - ANGIOPLASTY [None]
  - CEREBROVASCULAR ACCIDENT [None]
  - RENAL ARTERY STENOSIS [None]
